FAERS Safety Report 15627460 (Version 1)
Quarter: 2018Q4

REPORT INFORMATION
  Report Type: Spontaneous
  Country: US (occurrence: US)
  Receive Date: 20181116
  Receipt Date: 20181116
  Transmission Date: 20190205
  Serious: Yes (Hospitalization)
  Sender: FDA-Public Use
  Company Number: US-SAOL THERAPEUTICS-2018SAO01080

PATIENT
  Age: 60 Year
  Sex: Female

DRUGS (2)
  1. LIORESAL [Suspect]
     Active Substance: BACLOFEN
     Indication: MUSCLE SPASTICITY
     Dosage: 646.2 ?G, \DAY
     Route: 037
  2. LIORESAL [Suspect]
     Active Substance: BACLOFEN
     Indication: CEREBRAL PALSY

REACTIONS (7)
  - Cystitis [Recovered/Resolved]
  - Sepsis [Recovered/Resolved]
  - Drug withdrawal syndrome [Recovered/Resolved]
  - Altered state of consciousness [Recovered/Resolved]
  - Confusional state [Recovered/Resolved]
  - Agitation [Recovered/Resolved]
  - Restlessness [None]

NARRATIVE: CASE EVENT DATE: 20181107
